FAERS Safety Report 16070092 (Version 2)
Quarter: 2019Q2

REPORT INFORMATION
  Report Type: Spontaneous
  Country: US (occurrence: US)
  Receive Date: 20190314
  Receipt Date: 20190501
  Transmission Date: 20190711
  Serious: No
  Sender: FDA-Public Use
  Company Number: US-ASTRAZENECA-2019SE27290

PATIENT
  Age: 27726 Day
  Sex: Male
  Weight: 72.6 kg

DRUGS (2)
  1. BYDUREON BCISE [Suspect]
     Active Substance: EXENATIDE
     Indication: TYPE 2 DIABETES MELLITUS
     Route: 058
  2. BYDUREON BCISE [Suspect]
     Active Substance: EXENATIDE
     Indication: TYPE 2 DIABETES MELLITUS
     Route: 058
     Dates: start: 20180405

REACTIONS (6)
  - Hypoaesthesia [Not Recovered/Not Resolved]
  - Joint noise [Not Recovered/Not Resolved]
  - Incorrect dose administered [Recovered/Resolved]
  - Device malfunction [Not Recovered/Not Resolved]
  - Pain [Recovered/Resolved]
  - Wrong technique in product usage process [Recovered/Resolved]

NARRATIVE: CASE EVENT DATE: 20190202
